FAERS Safety Report 9855662 (Version 1)
Quarter: 2014Q1

REPORT INFORMATION
  Report Type: Spontaneous
  Country: US (occurrence: None)
  Receive Date: 20140129
  Receipt Date: 20140129
  Transmission Date: 20141002
  Serious: No
  Sender: FDA-Public Use
  Company Number: None

PATIENT
  Age: 13 Year
  Sex: Male
  Weight: 36.29 kg

DRUGS (1)
  1. METHYLPHENIDATE HYDROCHLORIDE ER [Suspect]
     Indication: ATTENTION DEFICIT/HYPERACTIVITY DISORDER
     Dosage: 1, ONCE DAILY, TAKEN BY MOUTH
     Route: 048
     Dates: start: 20140101, end: 20140121

REACTIONS (6)
  - Product substitution issue [None]
  - Product quality issue [None]
  - Abnormal behaviour [None]
  - Irritability [None]
  - Crying [None]
  - Emotional disorder [None]
